FAERS Safety Report 7064237-8 (Version None)
Quarter: 2010Q4

REPORT INFORMATION
  Report Type: 
  Country: None (occurrence: None)
  Receive Date: 20101027
  Receipt Date: 20101013
  Transmission Date: 20110411
  Serious: Yes (Hospitalization)
  Sender: FDA-Public Use
  Company Number: IL-RANBAXY-2010RR-38150

PATIENT
  Age: 77 Year
  Sex: Male

DRUGS (3)
  1. AMOXICILLIN [Suspect]
     Dosage: 500 MG, UNK
     Route: 048
  2. AMOXICILLIN [Suspect]
     Dosage: 500 MG, UNK
  3. CEFTRIAXONE [Concomitant]
     Dosage: UNK
     Route: 042

REACTIONS (1)
  - ENCEPHALITIS [None]
